FAERS Safety Report 5381503-2 (Version None)
Quarter: 2007Q3

REPORT INFORMATION
  Report Type: 
  Country: None (occurrence: None)
  Receive Date: 20070709
  Receipt Date: 20070627
  Transmission Date: 20080115
  Serious: Yes (Other)
  Sender: FDA-Public Use
  Company Number: PHBS2007JP08599

PATIENT
  Age: 16 Year
  Sex: Male

DRUGS (1)
  1. NEORAL [Suspect]
     Indication: NEPHROTIC SYNDROME
     Dosage: 100 MG/DAY
     Route: 048
     Dates: start: 20000201

REACTIONS (3)
  - NEPHROPATHY [None]
  - NEPHROTIC SYNDROME [None]
  - THERAPEUTIC RESPONSE DECREASED [None]
